FAERS Safety Report 24711346 (Version 1)
Quarter: 2024Q4

REPORT INFORMATION
  Report Type: Spontaneous
  Country: FR (occurrence: FR)
  Receive Date: 20241209
  Receipt Date: 20241209
  Transmission Date: 20250115
  Serious: Yes (Hospitalization)
  Sender: HIKMA
  Company Number: None

PATIENT
  Age: 59 Year
  Sex: Male
  Weight: 64 kg

DRUGS (17)
  1. CARBOPLATIN [Suspect]
     Active Substance: CARBOPLATIN
     Dosage: 1 DOSAGE FORM (CYCLE 1)
     Route: 042
     Dates: start: 20240828, end: 20240828
  2. CARBOPLATIN [Suspect]
     Active Substance: CARBOPLATIN
     Indication: Bronchial carcinoma
     Dosage: 550 MILLIGRAM (CYCLE 3)
     Route: 042
     Dates: start: 20241010, end: 20241010
  3. CARBOPLATIN [Suspect]
     Active Substance: CARBOPLATIN
     Dosage: 670 MILLIGRAM (CYCLE 2)
     Route: 042
     Dates: start: 20240918, end: 20240918
  4. KEYTRUDA [Suspect]
     Active Substance: PEMBROLIZUMAB
     Dosage: 1 DOSAGE FORM (C1)
     Route: 042
     Dates: start: 20240828, end: 20240828
  5. KEYTRUDA [Suspect]
     Active Substance: PEMBROLIZUMAB
     Dosage: 200 MILLIGRAM (C2)
     Route: 042
     Dates: start: 20240918, end: 20240918
  6. KEYTRUDA [Suspect]
     Active Substance: PEMBROLIZUMAB
     Indication: Bronchial carcinoma
     Dosage: 200 MILLIGRAM (C3)
     Route: 042
     Dates: start: 20241010, end: 20241010
  7. PEMETREXED [Suspect]
     Active Substance: PEMETREXED
     Dosage: 1 DOSAGE FORM (C1)
     Route: 042
     Dates: start: 20240828, end: 20240828
  8. PEMETREXED [Suspect]
     Active Substance: PEMETREXED
     Dosage: 850 MILLIGRAM (C2)
     Route: 042
     Dates: start: 20240918, end: 20240918
  9. PEMETREXED [Suspect]
     Active Substance: PEMETREXED
     Indication: Bronchial carcinoma
     Dosage: 875 MILLIGRAM (C3)
     Route: 042
     Dates: start: 20241010, end: 20241010
  10. MORPHINE SULFATE [Concomitant]
     Active Substance: MORPHINE SULFATE
     Indication: Product used for unknown indication
     Dosage: UNK
     Route: 065
  11. HYDROXYZINE HYDROCHLORIDE [Concomitant]
     Active Substance: HYDROXYZINE HYDROCHLORIDE
     Indication: Premedication
     Dosage: 1 DOSAGE FORM
     Route: 042
     Dates: start: 20240828, end: 20241010
  12. FOLIC ACID [Concomitant]
     Active Substance: FOLIC ACID
     Indication: Premedication
     Dosage: 1 DOSAGE FORM
     Route: 042
     Dates: start: 20240828, end: 20241010
  13. KARDEGIC [Concomitant]
     Active Substance: ASPIRIN DL-LYSINE
     Indication: Product used for unknown indication
     Dosage: UNK
     Route: 065
  14. PANTOPRAZOLE [Concomitant]
     Active Substance: PANTOPRAZOLE
     Indication: Product used for unknown indication
     Dosage: UNK
     Route: 065
     Dates: start: 20240828
  15. PRIMPERAN [Concomitant]
     Active Substance: METOCLOPRAMIDE HYDROCHLORIDE
     Indication: Product used for unknown indication
     Dosage: UNK
     Route: 065
  16. SKENAN [Concomitant]
     Active Substance: MORPHINE SULFATE
     Indication: Product used for unknown indication
     Dosage: UNK
     Route: 065
  17. PREDNISOLONE METASULFOBENZOATE SODIUM [Concomitant]
     Active Substance: PREDNISOLONE SODIUM METAZOATE
     Indication: Premedication
     Dosage: 1 DOSAGE FORM
     Route: 042
     Dates: start: 20240828, end: 20241010

REACTIONS (1)
  - Stevens-Johnson syndrome [Recovering/Resolving]

NARRATIVE: CASE EVENT DATE: 20241017
